FAERS Safety Report 25751721 (Version 1)
Quarter: 2025Q3

REPORT INFORMATION
  Report Type: Spontaneous
  Country: CA (occurrence: None)
  Receive Date: 20250901
  Receipt Date: 20250901
  Transmission Date: 20251021
  Serious: Yes (Hospitalization)
  Sender: FDA-CTU
  Company Number: None

PATIENT
  Age: 25 Year
  Sex: Male
  Weight: 72 kg

DRUGS (8)
  1. CITALOPRAM [Suspect]
     Active Substance: CITALOPRAM
     Dates: start: 20210914, end: 20241023
  2. WELLBUTRIN [Concomitant]
     Active Substance: BUPROPION HYDROCHLORIDE
  3. Omega 3^s [Concomitant]
  4. B12 [Concomitant]
  5. VITAMIN D [Concomitant]
     Active Substance: VITAMIN D NOS
  6. ACETYLCARNITINE [Concomitant]
     Active Substance: ACETYLCARNITINE
  7. PHOSPHATIDYL SERINE [Concomitant]
     Active Substance: PHOSPHATIDYL SERINE
  8. magnesium NAC [Concomitant]

REACTIONS (13)
  - Sexual dysfunction [None]
  - Anhedonia [None]
  - Genital hypoaesthesia [None]
  - Male orgasmic disorder [None]
  - Loss of libido [None]
  - Emotional poverty [None]
  - Insomnia [None]
  - Cognitive disorder [None]
  - Withdrawal syndrome [None]
  - Anhedonia [None]
  - Decreased appetite [None]
  - Quality of life decreased [None]
  - Suicidal ideation [None]
